FAERS Safety Report 13559665 (Version 1)
Quarter: 2017Q2

REPORT INFORMATION
  Report Type: Spontaneous
  Country: US (occurrence: US)
  Receive Date: 20170518
  Receipt Date: 20170518
  Transmission Date: 20170830
  Serious: No
  Sender: FDA-Public Use
  Company Number: US-LUPIN PHARMACEUTICALS INC.-E2B_00006637

PATIENT
  Age: 77 Year
  Sex: Male
  Weight: 77.11 kg

DRUGS (1)
  1. QUETIAPINE TABLETS USP, 50 MG [Suspect]
     Active Substance: QUETIAPINE
     Indication: SLEEP DISORDER
     Dosage: AT NIGHT
     Route: 065

REACTIONS (2)
  - Depression [Unknown]
  - Drug effect delayed [Not Recovered/Not Resolved]
